FAERS Safety Report 22211996 (Version 6)
Quarter: 2023Q4

REPORT INFORMATION
  Report Type: Report from Study
  Country: CN (occurrence: CN)
  Receive Date: 20230414
  Receipt Date: 20231005
  Transmission Date: 20240110
  Serious: Yes (Life-Threatening, Hospitalization)
  Sender: FDA-Public Use
  Company Number: CN-JNJFOC-20230129606

PATIENT
  Age: 69 Year
  Sex: Female
  Weight: 61 kg

DRUGS (17)
  1. TECLISTAMAB [Suspect]
     Active Substance: TECLISTAMAB
     Indication: Plasma cell myeloma
     Dosage: STARTING DOSE 1, 3.9 MG, DOSE 2 ON 7-MAR-2022 19MG ,C1D1-C8D15 FROM 10-MAR-2022 -19-DEC-22 99 MG , M
     Route: 058
     Dates: start: 20220303, end: 20221219
  2. RO-0622 [Concomitant]
     Active Substance: RO-0622
     Indication: Symptomatic treatment
  3. LEVOTHYROXINE SODIUM [Concomitant]
     Active Substance: LEVOTHYROXINE SODIUM
     Indication: Prophylaxis
     Dates: start: 202005
  4. OMEPRAZOLE [Concomitant]
     Active Substance: OMEPRAZOLE
     Indication: Prophylaxis
     Dates: start: 2018
  5. GLYCYRRHIZIN [Concomitant]
     Active Substance: GLYCYRRHIZIN
     Indication: Prophylaxis
     Dates: start: 2018
  6. GLYCYRRHIZIN [Concomitant]
     Active Substance: GLYCYRRHIZIN
     Indication: Pharyngitis
     Route: 042
     Dates: start: 20230129, end: 20230204
  7. GLYCYRRHIZIN [Concomitant]
     Active Substance: GLYCYRRHIZIN
     Dates: start: 20220312
  8. ASPIRIN [Concomitant]
     Active Substance: ASPIRIN
     Indication: Thrombosis prophylaxis
     Dates: start: 2019
  9. VALACYCLOVIR HYDROCHLORIDE [Concomitant]
     Active Substance: VALACYCLOVIR HYDROCHLORIDE
     Indication: Antiviral prophylaxis
     Dates: start: 2018
  10. PANTOPRAZOLE SODIUM [Concomitant]
     Active Substance: PANTOPRAZOLE SODIUM
     Indication: Prophylaxis
     Route: 042
     Dates: start: 20230116, end: 20230120
  11. PANTOPRAZOLE SODIUM [Concomitant]
     Active Substance: PANTOPRAZOLE SODIUM
     Route: 042
     Dates: start: 20230129, end: 20230204
  12. GLYCYRRHIZIN [Concomitant]
     Active Substance: GLYCYRRHIZIN
     Indication: Pharyngitis
     Dosage: ML
     Route: 048
     Dates: start: 20220312
  13. RABEPRAZOLE SODIUM [Concomitant]
     Active Substance: RABEPRAZOLE SODIUM
     Indication: Prophylaxis
     Route: 042
     Dates: start: 20230114, end: 20230115
  14. VITAMIN C [Concomitant]
     Active Substance: ASCORBIC ACID
     Indication: Prophylaxis
     Route: 042
     Dates: start: 20230113, end: 20230113
  15. VITAMIN C [Concomitant]
     Active Substance: ASCORBIC ACID
     Route: 042
     Dates: start: 20230120, end: 20230120
  16. ALBUMIN HUMAN [Concomitant]
     Active Substance: ALBUMIN HUMAN
     Indication: Hypoalbuminaemia
     Route: 042
     Dates: start: 20230130, end: 20230203
  17. .ALPHA.-ASARONE [Concomitant]
     Active Substance: .ALPHA.-ASARONE
     Indication: Pharyngitis
     Route: 048
     Dates: start: 20181221

REACTIONS (3)
  - COVID-19 pneumonia [Not Recovered/Not Resolved]
  - Pneumonia [Recovered/Resolved]
  - Respiratory failure [Recovered/Resolved]

NARRATIVE: CASE EVENT DATE: 20230111
